FAERS Safety Report 4348689-X (Version None)
Quarter: 2004Q2

REPORT INFORMATION
  Report Type: 
  Country: None (occurrence: None)
  Receive Date: 20040423
  Receipt Date: 20040408
  Transmission Date: 20050107
  Serious: Yes (Other)
  Sender: FDA-Public Use
  Company Number: K200301877

PATIENT
  Age: 47 Year
  Sex: Female
  Weight: 110.7 kg

DRUGS (14)
  1. LEVOXYL [Suspect]
     Indication: HYPOPITUITARISM
     Dosage: SEE IMAGE
     Route: 048
     Dates: start: 20030101, end: 20030101
  2. LEVOXYL [Suspect]
     Indication: HYPOPITUITARISM
     Dosage: SEE IMAGE
     Route: 048
     Dates: start: 20030101, end: 20030101
  3. LEVOXYL [Suspect]
     Indication: HYPOPITUITARISM
     Dosage: SEE IMAGE
     Route: 048
     Dates: start: 20030901, end: 20030101
  4. LEVOXYL [Suspect]
     Indication: HYPOPITUITARISM
     Dosage: SEE IMAGE
     Route: 048
     Dates: start: 20040114, end: 20040101
  5. LEVOXYL [Suspect]
     Indication: HYPOPITUITARISM
     Dosage: SEE IMAGE
     Route: 048
     Dates: start: 20030101, end: 20040113
  6. LEVOXYL [Suspect]
     Indication: HYPOPITUITARISM
     Dosage: SEE IMAGE
     Route: 048
     Dates: start: 20040101, end: 20040225
  7. LEVOXYL [Suspect]
     Indication: HYPOPITUITARISM
     Dosage: SEE IMAGE
     Route: 048
     Dates: start: 20040226, end: 20040330
  8. LEVOXYL [Suspect]
     Indication: HYPOPITUITARISM
     Dosage: SEE IMAGE
     Route: 048
     Dates: start: 20040331, end: 20040409
  9. LEVOXYL [Suspect]
     Indication: HYPOPITUITARISM
     Dosage: SEE IMAGE
     Route: 048
     Dates: start: 20040410, end: 20040412
  10. LEVOXYL [Suspect]
     Indication: HYPOPITUITARISM
     Dosage: SEE IMAGE
     Route: 048
     Dates: start: 20040413
  11. XANAX [Concomitant]
  12. MAGNESIUM (MAGNESIUM) [Concomitant]
  13. VITAMIN B COMPLEX CAP [Concomitant]
  14. POTASSIUM (POTASSIUM) [Concomitant]

REACTIONS (15)
  - BURNING SENSATION [None]
  - CONSTIPATION [None]
  - DYSPEPSIA [None]
  - FLUID RETENTION [None]
  - GASTROINTESTINAL DISORDER [None]
  - HYPERTHYROIDISM [None]
  - HYPOAESTHESIA [None]
  - OEDEMA PERIPHERAL [None]
  - OESOPHAGEAL SPASM [None]
  - PAIN [None]
  - PITTING OEDEMA [None]
  - REACTION TO AZO-DYES [None]
  - SWELLING [None]
  - SWELLING FACE [None]
  - WEIGHT INCREASED [None]
